FAERS Safety Report 9144538 (Version 1)
Quarter: 2013Q1

REPORT INFORMATION
  Report Type: Spontaneous
  Country: AU (occurrence: AU)
  Receive Date: 20130306
  Receipt Date: 20130306
  Transmission Date: 20140127
  Serious: Yes (Other)
  Sender: FDA-Public Use
  Company Number: AU-WATSON-2013-03197

PATIENT
  Sex: Male

DRUGS (1)
  1. TRELSTAR (WATSON LABORATORIES) [Suspect]
     Indication: PROSTATE CANCER
     Dosage: 22.5MG ONCE EVERY 6 MONTHS
     Route: 030
     Dates: start: 201211

REACTIONS (1)
  - Drug ineffective [Not Recovered/Not Resolved]
